FAERS Safety Report 17772838 (Version 3)
Quarter: 2020Q2

REPORT INFORMATION
  Report Type: Report from Study
  Country: CO (occurrence: CO)
  Receive Date: 20200512
  Receipt Date: 20200630
  Transmission Date: 20200714
  Serious: Yes (Other)
  Sender: FDA-Public Use
  Company Number: NVSC2020CO128552

PATIENT
  Sex: Male
  Weight: 70 kg

DRUGS (2)
  1. REVOLADE [Suspect]
     Active Substance: ELTROMBOPAG
     Dosage: 50 MG, QD
     Route: 048
  2. REVOLADE [Suspect]
     Active Substance: ELTROMBOPAG
     Indication: IMMUNE THROMBOCYTOPENIA
     Dosage: 25 MG, QD
     Route: 048
     Dates: start: 202003

REACTIONS (19)
  - Penile cancer [Unknown]
  - Insomnia [Unknown]
  - Defaecation disorder [Unknown]
  - Headache [Unknown]
  - Vision blurred [Unknown]
  - Abdominal pain [Unknown]
  - Neck pain [Unknown]
  - Glossitis [Unknown]
  - Antinuclear antibody positive [Unknown]
  - Platelet count decreased [Unknown]
  - Urine flow decreased [Recovering/Resolving]
  - Inflammation [Recovered/Resolved]
  - Haemorrhoids [Unknown]
  - Dizziness [Unknown]
  - Deafness [Unknown]
  - Malaise [Unknown]
  - Genital pain [Unknown]
  - Chromaturia [Unknown]
  - Psychiatric symptom [Unknown]
